FAERS Safety Report 6366543-9 (Version None)
Quarter: 2009Q3

REPORT INFORMATION
  Report Type: 
  Country: None (occurrence: None)
  Receive Date: 20090921
  Receipt Date: 20090916
  Transmission Date: 20100115
  Serious: Yes (Hospitalization)
  Sender: FDA-Public Use
  Company Number: US-BRISTOL-MYERS SQUIBB COMPANY-14782908

PATIENT
  Age: 66 Year
  Sex: Female
  Weight: 54 kg

DRUGS (6)
  1. ABILIFY [Suspect]
     Indication: DEMENTIA
     Dosage: 10MG QD TO 10MG BID-CURRENTLY TITRATIN UP
     Route: 048
     Dates: start: 20090330
  2. SEROQUEL [Suspect]
     Dosage: 300MG QAM+200MG QPM BEFORE TAPER
     Route: 048
     Dates: start: 20090101
  3. PRILOSEC [Concomitant]
  4. LISINOPRIL [Concomitant]
  5. ATENOLOL [Concomitant]
  6. VALPROIC ACID [Concomitant]

REACTIONS (1)
  - PNEUMONIA [None]
